FAERS Safety Report 24116630 (Version 1)
Quarter: 2024Q3

REPORT INFORMATION
  Report Type: Spontaneous
  Country: US (occurrence: US)
  Receive Date: 20240722
  Receipt Date: 20240722
  Transmission Date: 20241017
  Serious: Yes (Hospitalization, Other)
  Sender: BRISTOL MYERS SQUIBB
  Company Number: US-BRISTOL-MYERS SQUIBB COMPANY-2024-112297

PATIENT
  Age: 77 Year
  Sex: Female

DRUGS (22)
  1. INREBIC [Suspect]
     Active Substance: FEDRATINIB HYDROCHLORIDE
     Indication: Splenomegaly
     Dosage: FREQUENCY: TAKE 3 CAPSULES (300 MG) BY MOUTH DAILY
     Route: 048
  2. ALLOPURINOL [Concomitant]
     Active Substance: ALLOPURINOL
  3. ASPIRIN [Concomitant]
     Active Substance: ASPIRIN
  4. COLESTIPOL HYDROCHLORIDE [Concomitant]
     Active Substance: COLESTIPOL HYDROCHLORIDE
  5. EUTHYROX [Concomitant]
     Active Substance: LEVOTHYROXINE SODIUM
  6. EZETIMIBE [Concomitant]
     Active Substance: EZETIMIBE
  7. FAMOTIDINE [Concomitant]
     Active Substance: FAMOTIDINE
  8. GABAPENTIN [Concomitant]
     Active Substance: GABAPENTIN
  9. IPRATROPIUM [Concomitant]
     Active Substance: IPRATROPIUM
  10. METOPROLOL SUCCINATE [Concomitant]
     Active Substance: METOPROLOL SUCCINATE
     Dosage: TB2
  11. VITAMINS NOS [Concomitant]
     Active Substance: VITAMINS
     Dosage: LIQ
  12. NOVOLOG [Concomitant]
     Active Substance: INSULIN ASPART
     Dosage: SOP 100UNIT
  13. OMEPRAZOLE [Concomitant]
     Active Substance: OMEPRAZOLE
  14. OXYCODONE HYDROCHLORIDE [Concomitant]
     Active Substance: OXYCODONE HYDROCHLORIDE
  15. PRAVASTATIN [Concomitant]
     Active Substance: PRAVASTATIN
  16. SERTRALINE HYDROCHLORIDE [Concomitant]
     Active Substance: SERTRALINE HYDROCHLORIDE
  17. STIOLTO RESPIMAT [Concomitant]
     Active Substance: OLODATEROL HYDROCHLORIDE\TIOTROPIUM BROMIDE MONOHYDRATE
     Dosage: AER 2.5-2.5M
  18. TRESIBA [Concomitant]
     Active Substance: INSULIN DEGLUDEC
  19. VITAMIN C [Concomitant]
     Active Substance: ASCORBIC ACID
  20. ERGOCALCIFEROL [Concomitant]
     Active Substance: ERGOCALCIFEROL
     Dosage: 1000
  21. VITAMIN D3 [Concomitant]
     Active Substance: CHOLECALCIFEROL
  22. ZINC [Concomitant]
     Active Substance: ZINC

REACTIONS (4)
  - Food poisoning [Unknown]
  - Renal failure [Unknown]
  - Pneumonia [Unknown]
  - Hepatic failure [Unknown]
